FAERS Safety Report 25863427 (Version 1)
Quarter: 2025Q3

REPORT INFORMATION
  Report Type: Report from Study
  Country: US (occurrence: US)
  Receive Date: 20250930
  Receipt Date: 20250930
  Transmission Date: 20251020
  Serious: Yes (Hospitalization, Other)
  Sender: ABBVIE
  Company Number: US-ABBVIE-5965235

PATIENT
  Sex: Female

DRUGS (3)
  1. HUMIRA [Suspect]
     Active Substance: ADALIMUMAB
     Indication: Crohn^s disease
     Route: 058
     Dates: start: 2018, end: 2021
  2. HUMIRA [Suspect]
     Active Substance: ADALIMUMAB
     Route: 058
     Dates: start: 2022, end: 20250917
  3. CHOLESTYRAMINE [Concomitant]
     Active Substance: CHOLESTYRAMINE
     Indication: Cholecystectomy
     Dates: start: 20250924

REACTIONS (6)
  - Inflammation [Unknown]
  - Drug ineffective [Not Recovered/Not Resolved]
  - Sleeve gastrectomy [Recovering/Resolving]
  - Cholelithiasis [Unknown]
  - Crohn^s disease [Unknown]
  - Pancreatitis [Unknown]
